FAERS Safety Report 8052470-8 (Version None)
Quarter: 2012Q1

REPORT INFORMATION
  Report Type: 
  Country: None (occurrence: None)
  Receive Date: 20120118
  Receipt Date: 20120112
  Transmission Date: 20120608
  Serious: Yes (Other)
  Sender: FDA-Public Use
  Company Number: US-PFIZER INC-2012010419

PATIENT
  Sex: Male
  Weight: 113 kg

DRUGS (5)
  1. WELLBUTRIN [Concomitant]
     Indication: BIPOLAR DISORDER
     Dosage: UNK
  2. AMBIEN [Concomitant]
     Indication: BIPOLAR DISORDER
     Dosage: UNK
  3. VIAGRA [Suspect]
     Indication: ERECTILE DYSFUNCTION
     Dosage: UNK
     Route: 048
  4. SEROQUEL [Concomitant]
     Indication: BIPOLAR DISORDER
     Dosage: UNK
  5. CLONAZEPAM [Concomitant]
     Indication: BIPOLAR DISORDER
     Dosage: UNK

REACTIONS (4)
  - ACCIDENT [None]
  - WEIGHT INCREASED [None]
  - CHRONIC INFLAMMATORY DEMYELINATING POLYRADICULONEUROPATHY [None]
  - PERIPHERAL NERVE INJURY [None]
